FAERS Safety Report 9171639 (Version 2)
Quarter: 2013Q3

REPORT INFORMATION
  Report Type: Spontaneous
  Country: IT (occurrence: IT)
  Receive Date: 20130319
  Receipt Date: 20130808
  Transmission Date: 20140515
  Serious: Yes (Hospitalization)
  Sender: FDA-Public Use
  Company Number: IT-GLAXOSMITHKLINE-B0876128A

PATIENT
  Age: 78 Year
  Sex: Female

DRUGS (6)
  1. RYTMONORM [Suspect]
     Indication: ATRIAL FIBRILLATION
     Dosage: 450MG PER DAY
     Route: 048
     Dates: start: 20130201, end: 20130201
  2. IRBESARTAN [Concomitant]
  3. ATORVASTATIN CALCIUM [Concomitant]
  4. ALLOPURINOL [Concomitant]
  5. ACETYLSALICYLIC ACID [Concomitant]
  6. LASIX [Concomitant]
     Dosage: 12.5MG PER DAY

REACTIONS (4)
  - Loss of consciousness [Recovered/Resolved]
  - Urinary incontinence [Recovered/Resolved]
  - Bradycardia [Recovered/Resolved]
  - Adverse drug reaction [Recovered/Resolved]
